FAERS Safety Report 4898769-5 (Version None)
Quarter: 2006Q1

REPORT INFORMATION
  Report Type: 
  Country: None (occurrence: None)
  Receive Date: 20060127
  Receipt Date: 20060118
  Transmission Date: 20060701
  Serious: Yes (Death, Hospitalization)
  Sender: FDA-Public Use
  Company Number: 163-20785-03080541

PATIENT
  Age: 76 Year
  Sex: Male

DRUGS (9)
  1. THALOMID [Suspect]
     Indication: MULTIPLE MYELOMA
     Dosage: 150 MG, QD, ORAL
     Route: 048
     Dates: start: 20030715, end: 20050101
  2. TOPROL-XL [Concomitant]
  3. ASPIRIN [Concomitant]
  4. CELEBREX [Concomitant]
  5. NEXIUM [Concomitant]
  6. TRICOR [Concomitant]
  7. PERCOCET [Concomitant]
  8. COUMADIN [Concomitant]
  9. DEXAMETHASONE [Concomitant]

REACTIONS (4)
  - BACK PAIN [None]
  - DISEASE PROGRESSION [None]
  - MYOCARDIAL INFARCTION [None]
  - SPINAL CORD COMPRESSION [None]
